FAERS Safety Report 7606050-6 (Version None)
Quarter: 2011Q3

REPORT INFORMATION
  Report Type: 
  Country: None (occurrence: None)
  Receive Date: 20110713
  Receipt Date: 20110705
  Transmission Date: 20111222
  Serious: Yes (Hospitalization, Other)
  Sender: FDA-Public Use
  Company Number: US-BAXTER-2011BH020869

PATIENT
  Age: 53 Year
  Sex: Female

DRUGS (1)
  1. DIANEAL [Suspect]
     Indication: PERITONEAL DIALYSIS
     Route: 033

REACTIONS (8)
  - ABDOMINAL PAIN [None]
  - ANTIBIOTIC RESISTANT STAPHYLOCOCCUS TEST POSITIVE [None]
  - PERITONEAL DIALYSIS COMPLICATION [None]
  - WRONG TECHNIQUE IN DRUG USAGE PROCESS [None]
  - FRACTURED COCCYX [None]
  - INFECTION [None]
  - IATROGENIC INFECTION [None]
  - PERITONITIS BACTERIAL [None]
